FAERS Safety Report 13476094 (Version 7)
Quarter: 2017Q3

REPORT INFORMATION
  Report Type: Report from Study
  Country: US (occurrence: US)
  Receive Date: 20170424
  Receipt Date: 20170814
  Transmission Date: 20171127
  Serious: Yes (Hospitalization, Other)
  Sender: FDA-Public Use
  Company Number: US-AMGEN-USASL2017014837

PATIENT
  Age: 77 Year
  Sex: Female

DRUGS (3)
  1. REPATHA [Suspect]
     Active Substance: EVOLOCUMAB
     Indication: BLOOD CHOLESTEROL ABNORMAL
     Dosage: 140 MG, Q2WK
     Route: 065
     Dates: end: 20170109
  2. REPATHA [Suspect]
     Active Substance: EVOLOCUMAB
     Indication: HYPERCHOLESTEROLAEMIA
  3. PREDNISONE. [Suspect]
     Active Substance: PREDNISONE
     Indication: TEMPORAL ARTERITIS
     Dosage: UNK
     Route: 065

REACTIONS (15)
  - Dizziness [Unknown]
  - Limb crushing injury [Unknown]
  - Pulmonary hypertension [Unknown]
  - Fall [Unknown]
  - Loss of personal independence in daily activities [Unknown]
  - Temporal arteritis [Unknown]
  - Swelling [Unknown]
  - Left ventricular failure [Unknown]
  - Heart rate irregular [Unknown]
  - Erythema [Unknown]
  - Rash [Unknown]
  - Intraocular lens implant [Unknown]
  - Feeling abnormal [Unknown]
  - Swelling face [Unknown]
  - Blood cholesterol increased [Unknown]

NARRATIVE: CASE EVENT DATE: 2017
